FAERS Safety Report 9414546 (Version 2)
Quarter: 2013Q3

REPORT INFORMATION
  Report Type: Spontaneous
  Country: JP (occurrence: JP)
  Receive Date: 20130723
  Receipt Date: 20130731
  Transmission Date: 20140515
  Serious: Yes (Death)
  Sender: FDA-Public Use
  Company Number: JP-COVIDIEN/TYCO HEALTHCARE/MALLINCKRODT-T201303790

PATIENT
  Age: 74 Year
  Sex: Male
  Weight: 41.2 kg

DRUGS (12)
  1. METHADONE [Suspect]
     Indication: CANCER PAIN
     Dosage: 15 MG, UNK
     Route: 048
     Dates: start: 20130415, end: 20130421
  2. METHADONE [Suspect]
     Dosage: 30 MG, UNK
     Route: 048
     Dates: start: 20130422, end: 20130427
  3. METHADONE [Suspect]
     Dosage: 20 MG, UNK
     Route: 048
     Dates: start: 20130428, end: 20130429
  4. METHADONE [Suspect]
     Dosage: 5 MG, SINGLE
  5. METHADONE [Suspect]
     Dosage: 10 MG, SINGLE
  6. METHADONE [Suspect]
     Dosage: 10 MG, SINGLE
  7. POPSCAINE [Concomitant]
     Indication: PRODUCT USED FOR UNKNOWN INDICATION
     Dosage: 40.8 MG, UNK
     Route: 008
     Dates: start: 20130414, end: 20130415
  8. POPSCAINE [Concomitant]
     Dosage: 48 MG, UNK
     Route: 008
     Dates: start: 20130416, end: 20130424
  9. POPSCAINE [Concomitant]
     Dosage: 58.8 UNK, UNK
     Route: 008
     Dates: start: 20130425, end: 20130428
  10. ANPEC                              /00036303/ [Concomitant]
     Indication: PRODUCT USED FOR UNKNOWN INDICATION
     Dosage: 3.36 MG, UNK
     Route: 008
     Dates: start: 20130414, end: 20130415
  11. ANPEC                              /00036303/ [Concomitant]
     Dosage: 3.84 MG, UNK
     Route: 008
     Dates: start: 20130416, end: 20130424
  12. ANPEC                              /00036303/ [Concomitant]
     Dosage: 4.7 MG, UNK
     Route: 008
     Dates: start: 20130425, end: 20130428

REACTIONS (1)
  - Rectal cancer [Fatal]
